FAERS Safety Report 5890207-9 (Version None)
Quarter: 2008Q3

REPORT INFORMATION
  Report Type: 
  Country: None (occurrence: None)
  Receive Date: 20080919
  Receipt Date: 20080908
  Transmission Date: 20090109
  Serious: Yes (Other)
  Sender: FDA-Public Use
  Company Number: US-PFIZER INC-2008076089

PATIENT
  Age: 22 Year
  Sex: Female

DRUGS (2)
  1. LYRICA [Suspect]
  2. ULTRAM [Suspect]

REACTIONS (1)
  - CONVULSION [None]
